FAERS Safety Report 10370810 (Version 1)
Quarter: 2014Q3

REPORT INFORMATION
  Report Type: Spontaneous
  Country: CH (occurrence: CH)
  Receive Date: 20140808
  Receipt Date: 20140808
  Transmission Date: 20150326
  Serious: Yes (Hospitalization)
  Sender: FDA-Public Use
  Company Number: CH-TEVA-498640ISR

PATIENT
  Age: 73 Year
  Sex: Female
  Weight: 86.7 kg

DRUGS (7)
  1. ENATEC 20 TABLETTEN [Suspect]
     Active Substance: ENALAPRIL MALEATE
     Indication: PRODUCT USED FOR UNKNOWN INDICATION
     Dosage: 20 MILLIGRAM DAILY; THERAPY START DATE IS UNKNOWN
     Route: 048
     Dates: end: 20140616
  2. ALDACTONE [Suspect]
     Active Substance: SPIRONOLACTONE
     Indication: PRODUCT USED FOR UNKNOWN INDICATION
     Dosage: 25 MILLIGRAM DAILY; THERAPY START DATE IS UNKNOWN
     Route: 048
     Dates: end: 20140616
  3. TENORMIN [Concomitant]
     Active Substance: ATENOLOL
     Indication: PRODUCT USED FOR UNKNOWN INDICATION
     Dosage: 50 MILLIGRAM DAILY; CONTINUING, THERAPY REDUCED TO 25 MG 1 X PER DAY
     Route: 048
  4. LASIX 40 MG [Concomitant]
     Dosage: 40 MILLIGRAM DAILY;
     Route: 048
     Dates: end: 20140616
  5. MARCOUMAR 3 MG TABLETTEN [Suspect]
     Active Substance: PHENPROCOUMON
     Indication: AORTIC VALVE REPAIR
     Dosage: 1.5 MILLIGRAM DAILY;
     Route: 048
     Dates: start: 2001, end: 20140616
  6. MEPHANOL 100 MG [Concomitant]
     Dosage: 100 MILLIGRAM DAILY; CONTINUING
     Route: 048
  7. DAFLON 500 MG [Concomitant]
     Dosage: 1 DOSAGE FORMS DAILY; CONTINUING; 1 DF = 50 MG HESPERIDINE, 450 MG DIOSMINE
     Route: 048

REACTIONS (10)
  - Shock haemorrhagic [Recovering/Resolving]
  - Gastrointestinal haemorrhage [Recovering/Resolving]
  - Anaemia [Recovering/Resolving]
  - Renal failure chronic [Recovered/Resolved]
  - Diverticulum [Unknown]
  - Hyperkalaemia [Recovered/Resolved]
  - Metabolic acidosis [Recovering/Resolving]
  - Body temperature decreased [None]
  - Gastritis erosive [Unknown]
  - Dehydration [None]

NARRATIVE: CASE EVENT DATE: 20140616
